FAERS Safety Report 5641806-0 (Version None)
Quarter: 2008Q1

REPORT INFORMATION
  Report Type: 
  Country: None (occurrence: None)
  Receive Date: 20080227
  Receipt Date: 20080225
  Transmission Date: 20080703
  Serious: Yes (Death)
  Sender: FDA-Public Use
  Company Number: DE-WYE-G01125908

PATIENT
  Sex: Female

DRUGS (8)
  1. TAZOBACTAM [Suspect]
     Indication: INFECTION PROPHYLAXIS
     Route: 042
     Dates: start: 20041204, end: 20041207
  2. CIPRO [Suspect]
     Indication: KIDNEY INFECTION
     Route: 048
     Dates: start: 20041110
  3. VFEND [Suspect]
     Indication: CANDIDIASIS
     Dosage: UNKNOWN
     Route: 042
     Dates: start: 20041209
  4. VANCOMYCIN [Suspect]
     Indication: INFECTION PROPHYLAXIS
     Route: 042
     Dates: start: 20041114
  5. ITRACONAZOLE [Suspect]
     Indication: CANDIDIASIS
     Route: 042
     Dates: start: 20041206, end: 20041208
  6. MERONEM [Suspect]
     Indication: SEPSIS
     Dosage: ONE TIME PER DAY (AMOUNT UNKNOWN)
     Route: 042
     Dates: start: 20041208
  7. DEXAMETHASONE TAB [Suspect]
     Indication: LEUKAEMIA
     Dosage: 6-12MG (FREQUENCY UNKNOWN)
     Route: 042
     Dates: start: 20041110, end: 20041130
  8. ZOVIRAX [Suspect]
     Indication: INFECTION PROPHYLAXIS
     Dosage: 1500-1600MG PER DAY
     Route: 042
     Dates: start: 20041110

REACTIONS (4)
  - CARDIOVASCULAR INSUFFICIENCY [None]
  - RENAL FAILURE ACUTE [None]
  - SEPSIS [None]
  - TOXIC EPIDERMAL NECROLYSIS [None]
